FAERS Safety Report 23370001 (Version 1)
Quarter: 2024Q1

REPORT INFORMATION
  Report Type: Spontaneous
  Country: US (occurrence: US)
  Receive Date: 20240105
  Receipt Date: 20240105
  Transmission Date: 20240410
  Serious: No
  Sender: FDA-Public Use
  Company Number: US-BIOVITRUM-2023-US-021474

PATIENT
  Age: 37 Year
  Sex: Male

DRUGS (1)
  1. KINERET [Suspect]
     Active Substance: ANAKINRA
     Indication: Autoinflammatory disease
     Dosage: 100MG, DAILY
     Route: 058
     Dates: start: 20200124

REACTIONS (2)
  - Autoinflammatory disease [Unknown]
  - Condition aggravated [Unknown]
